FAERS Safety Report 16376118 (Version 1)
Quarter: 2019Q2

REPORT INFORMATION
  Report Type: Spontaneous
  Country: GB (occurrence: GB)
  Receive Date: 20190531
  Receipt Date: 20190531
  Transmission Date: 20190711
  Serious: Yes (Death)
  Sender: FDA-Public Use
  Company Number: GB-IPSEN BIOPHARMACEUTICALS, INC.-2019-08925

PATIENT
  Age: 14 Year
  Sex: Female

DRUGS (1)
  1. INCRELEX [Suspect]
     Active Substance: MECASERMIN
     Indication: GROWTH DISORDER
     Dosage: DOSE NOT REPORTED
     Route: 065

REACTIONS (1)
  - Death [Fatal]
